FAERS Safety Report 14445945 (Version 1)
Quarter: 2018Q1

REPORT INFORMATION
  Report Type: Spontaneous
  Country: DE (occurrence: DE)
  Receive Date: 20180126
  Receipt Date: 20180126
  Transmission Date: 20180509
  Serious: Yes (Other)
  Sender: FDA-Public Use
  Company Number: DE-PFIZER INC-2018036022

PATIENT
  Age: 74 Year
  Sex: Female

DRUGS (2)
  1. METHOTREXATE SODIUM. [Suspect]
     Active Substance: METHOTREXATE SODIUM
     Indication: PRODUCT USED FOR UNKNOWN INDICATION
     Dosage: UNK
     Route: 042
  2. PARAPLATIN [Suspect]
     Active Substance: CARBOPLATIN
     Indication: BLADDER NEOPLASM
     Dosage: 420 MG, UNK
     Route: 042
     Dates: start: 19990301, end: 19990401

REACTIONS (1)
  - Cerebellar syndrome [Unknown]

NARRATIVE: CASE EVENT DATE: 19990401
